FAERS Safety Report 7529626-3 (Version None)
Quarter: 2011Q2

REPORT INFORMATION
  Report Type: 
  Country: None (occurrence: None)
  Receive Date: 20110607
  Receipt Date: 20110520
  Transmission Date: 20111010
  Serious: Yes (Hospitalization, Disabling)
  Sender: FDA-Public Use
  Company Number: A0841702A

PATIENT
  Age: 47 Year
  Sex: Male
  Weight: 136.4 kg

DRUGS (7)
  1. PRILOSEC [Concomitant]
  2. ZOLOFT [Concomitant]
  3. LANOXIN [Concomitant]
  4. AVANDIA [Suspect]
     Dosage: 4MG PER DAY
     Route: 048
     Dates: start: 19990101, end: 20020101
  5. LIPITOR [Concomitant]
  6. XANAX [Concomitant]
  7. COREG [Concomitant]

REACTIONS (5)
  - CORONARY ARTERY DISEASE [None]
  - MYOCARDIAL INFARCTION [None]
  - CARDIAC FAILURE CONGESTIVE [None]
  - ARRHYTHMIA [None]
  - CARDIOMYOPATHY [None]
